FAERS Safety Report 6142251-4 (Version None)
Quarter: 2009Q2

REPORT INFORMATION
  Report Type: 
  Country: None (occurrence: None)
  Receive Date: 20090401
  Receipt Date: 20090401
  Transmission Date: 20091009
  Serious: Yes (Hospitalization)
  Sender: FDA-Public Use
  Company Number: None

PATIENT
  Sex: Male
  Weight: 76.5 kg

DRUGS (2)
  1. BEVACIZUMAB [Suspect]
     Indication: RENAL CANCER
     Dosage: 15MG/KG DAY 1 IV
     Route: 042
     Dates: start: 20081117, end: 20090309
  2. BORTEZOMIB [Suspect]
     Indication: RENAL CANCER
     Dosage: 1.3MG/M2 DAY 1, 4, 8, 11 IV
     Route: 042
     Dates: start: 20081117, end: 20090312

REACTIONS (6)
  - DYSPNOEA [None]
  - DYSPNOEA EXERTIONAL [None]
  - FATIGUE [None]
  - LOBAR PNEUMONIA [None]
  - PULMONARY EMBOLISM [None]
  - THROMBOCYTOPENIA [None]
